FAERS Safety Report 20572412 (Version 1)
Quarter: 2022Q1

REPORT INFORMATION
  Report Type: Spontaneous
  Country: PT (occurrence: PT)
  Receive Date: 20220309
  Receipt Date: 20220309
  Transmission Date: 20220423
  Serious: Yes (Other)
  Sender: FDA-Public Use
  Company Number: None

PATIENT
  Age: 66 Year
  Sex: Male

DRUGS (5)
  1. VORICONAZOLE [Suspect]
     Active Substance: VORICONAZOLE
     Indication: Bronchopulmonary aspergillosis
     Dosage: STRENGTH: 200 MG
     Route: 042
     Dates: start: 20210407, end: 20210408
  2. CRESEMBA [Suspect]
     Active Substance: ISAVUCONAZONIUM SULFATE
     Indication: Bronchopulmonary aspergillosis
     Dosage: EMPIRICAL TREATMENT PULMONARY ASPERGILLOSIS - LOADING DOSE
     Route: 042
     Dates: start: 20210413, end: 20210414
  3. PIPERACILLIN AND TAZOBACTAM [Suspect]
     Active Substance: PIPERACILLIN SODIUM\TAZOBACTAM SODIUM
     Indication: Pneumonia
     Dosage: PNEUMONIA - EMPIRICAL TREATMENT
     Route: 065
     Dates: start: 20210406, end: 20210414
  4. AMOXICILLIN\CLAVULANIC ACID [Suspect]
     Active Substance: AMOXICILLIN\CLAVULANIC ACID
     Indication: Pneumonia
     Dosage: PNEUMONIA - EMPIRICAL TREATMENT
     Route: 042
     Dates: start: 20210401, end: 20210406
  5. VORICONAZOLE [Suspect]
     Active Substance: VORICONAZOLE
     Indication: Bronchopulmonary aspergillosis
     Dosage: STRENGTH: 40 MG/ ML
     Route: 048
     Dates: start: 20210408, end: 20210412

REACTIONS (3)
  - Cholestasis [Unknown]
  - Jaundice [Unknown]
  - Deficiency of bile secretion [Recovered/Resolved]

NARRATIVE: CASE EVENT DATE: 20210411
